FAERS Safety Report 17820945 (Version 1)
Quarter: 2020Q2

REPORT INFORMATION
  Report Type: Spontaneous
  Country: CA (occurrence: CA)
  Receive Date: 20200525
  Receipt Date: 20200525
  Transmission Date: 20200714
  Serious: Yes (Other)
  Sender: FDA-Public Use
  Company Number: CA-TEVA-2020-CA-1238612

PATIENT
  Age: 14 Year
  Sex: Male
  Weight: 43 kg

DRUGS (5)
  1. DOXORUBICIN HYDROCHLORIDE. [Suspect]
     Active Substance: DOXORUBICIN HYDROCHLORIDE
     Indication: PRODUCT USED FOR UNKNOWN INDICATION
     Route: 042
  2. CYCLOPHOSPHAMIDE. [Suspect]
     Active Substance: CYCLOPHOSPHAMIDE
     Indication: LYMPHOMA
     Route: 042
  3. RITUXAN [Concomitant]
     Active Substance: RITUXIMAB
  4. ETOPOSIDE. [Suspect]
     Active Substance: ETOPOSIDE
     Indication: PRODUCT USED FOR UNKNOWN INDICATION
     Route: 042
  5. VINCRISTINE SULFATE. [Concomitant]
     Active Substance: VINCRISTINE SULFATE

REACTIONS (1)
  - Cardiotoxicity [Unknown]
